FAERS Safety Report 4502036-9 (Version None)
Quarter: 2004Q4

REPORT INFORMATION
  Report Type: 
  Country: None (occurrence: None)
  Receive Date: 20041115
  Receipt Date: 20041115
  Transmission Date: 20050328
  Serious: Yes (Other)
  Sender: FDA-Public Use
  Company Number: None

PATIENT
  Sex: Female
  Weight: 80.7403 kg

DRUGS (6)
  1. NORVASC [Suspect]
     Indication: BLOOD PRESSURE
     Dosage: 5MG 1XDAY ORAL
     Route: 048
     Dates: start: 20040521, end: 20041015
  2. NORVASC [Suspect]
     Indication: CHEST PAIN
     Dosage: 5MG 1XDAY ORAL
     Route: 048
     Dates: start: 20040521, end: 20041015
  3. LEVOXYL [Concomitant]
  4. SINGULAIR [Concomitant]
  5. ALPRAZOLAM [Concomitant]
  6. ATACAND [Concomitant]

REACTIONS (3)
  - ERYTHEMA NODOSUM [None]
  - RASH ERYTHEMATOUS [None]
  - SCAB [None]
